FAERS Safety Report 9846269 (Version 2)
Quarter: 2014Q1

REPORT INFORMATION
  Report Type: Report from Study
  Country: BR (occurrence: BR)
  Receive Date: 20140127
  Receipt Date: 20140227
  Transmission Date: 20141002
  Serious: Yes (Hospitalization, Other)
  Sender: FDA-Public Use
  Company Number: PHHY2014BR008408

PATIENT
  Sex: Female

DRUGS (2)
  1. EXELON PATCH [Suspect]
     Indication: DEMENTIA ALZHEIMER^S TYPE
     Dosage: 13.3 MG, DAILY (27MG/15CM2)
     Route: 062
  2. CARBIDOPA LEVODOPA [Concomitant]
     Indication: DEMENTIA ALZHEIMER^S TYPE
     Dosage: HALF TABLET, 5 TIMES PER DAY

REACTIONS (5)
  - Dehydration [Recovering/Resolving]
  - Asthenia [Unknown]
  - Pneumonia [Recovered/Resolved]
  - Dysphagia [Recovering/Resolving]
  - Parkinson^s disease [Not Recovered/Not Resolved]
